FAERS Safety Report 20417966 (Version 1)
Quarter: 2022Q1

REPORT INFORMATION
  Report Type: Spontaneous
  Country: JP (occurrence: JP)
  Receive Date: 20220202
  Receipt Date: 20220202
  Transmission Date: 20220423
  Serious: Yes (Other)
  Sender: FDA-Public Use
  Company Number: JP-Eisai-202110237_LUN_P_1

PATIENT
  Age: 19 Year
  Sex: Male

DRUGS (6)
  1. LUNESTA [Suspect]
     Active Substance: ESZOPICLONE
     Indication: Insomnia
     Dosage: 1 MG, QD
     Route: 048
     Dates: start: 20210702
  2. LUNESTA [Suspect]
     Active Substance: ESZOPICLONE
     Dosage: 1 MG, QD
     Route: 048
     Dates: start: 202109
  3. TOFISOPAM [Concomitant]
     Active Substance: TOFISOPAM
     Indication: Anxiety
     Dosage: 50MG PER DOSE, AS NEEDED
     Route: 065
     Dates: start: 20210702
  4. SULPIRIDE [Concomitant]
     Active Substance: SULPIRIDE
     Indication: Anxiety
     Dosage: 50MG PER DOSE, AS NEEDED
     Route: 065
     Dates: start: 20210702
  5. CHLORDIAZEPOXIDE [Concomitant]
     Active Substance: CHLORDIAZEPOXIDE
     Indication: Anxiety
     Dosage: 5MG PER DOSE, AS NEEDED
     Route: 065
     Dates: start: 20210906
  6. Kamikihito [Concomitant]
     Indication: Mental disorder
     Route: 048
     Dates: start: 20210921

REACTIONS (2)
  - Suicide attempt [Recovered/Resolved]
  - Anxiety [Recovered/Resolved]

NARRATIVE: CASE EVENT DATE: 20210901
